FAERS Safety Report 8199273 (Version 4)
Quarter: 2019Q3

REPORT INFORMATION
  Report Type: Spontaneous
  Country: NL (occurrence: NL)
  Receive Date: 20111025
  Receipt Date: 20190909
  Transmission Date: 20191005
  Serious: Yes (Other)
  Sender: FDA-Public Use
  Company Number: NL-TEVA-306156ISR

PATIENT
  Sex: Female
  Weight: 54 kg

DRUGS (9)
  1. ASCAL 80MG [Concomitant]
     Dosage: 80 MILLIGRAM DAILY;
     Dates: start: 2007
  2. PARACETAMOL/CODEINE; WEET NIET [Concomitant]
     Dosage: 1 DOSAGE FORMS DAILY; 500PARACETAMOL/20MG CODEINE
     Dates: start: 2010
  3. METHOTREXAAT (ONCOLYTICA); WEET NIET [Concomitant]
     Dosage: 12.8571 MILLIGRAM DAILY; MTX 6 X 2.5 MG (15 MG/WEEK),
     Dates: start: 2004
  4. OMEPRAZOL; WEET NIET [Concomitant]
     Dosage: 20 MILLIGRAM DAILY; 20 MG/DAY
     Dates: start: 2004
  5. HUMIRA [Suspect]
     Active Substance: ADALIMUMAB
     Indication: RHEUMATOID ARTHRITIS
     Dosage: 1 /2 WEEKS 40MG
     Dates: start: 2006
  6. FLIXOTIDE [Concomitant]
     Active Substance: FLUTICASONE PROPIONATE
     Dosage: DOSAGE UNKNOWN
     Dates: start: 2006
  7. METHOTREXAAT (ONCOLYTICA); WEET NIET [Concomitant]
     Dosage: 20 MG/WEEK
  8. BISOPROLOLFUMARAAT RP TABLET 2,5MG [Suspect]
     Active Substance: BISOPROLOL FUMARATE
     Indication: MYOCARDIAL INFARCTION
     Dosage: 2 MILLIGRAM DAILY;
     Dates: start: 2007
  9. SIMVASTATINE; WEET NIET [Concomitant]
     Dosage: 40 MILLIGRAM DAILY; 40 MG/DAY

REACTIONS (1)
  - Retroperitoneal fibrosis [Recovering/Resolving]
